FAERS Safety Report 6163098-9 (Version None)
Quarter: 2009Q2

REPORT INFORMATION
  Report Type: 
  Country: None (occurrence: None)
  Receive Date: 20090422
  Receipt Date: 20090414
  Transmission Date: 20091009
  Serious: Yes (Hospitalization)
  Sender: FDA-Public Use
  Company Number: CA-JNJFOC-20090403884

PATIENT
  Sex: Male
  Weight: 86 kg

DRUGS (13)
  1. REMICADE [Suspect]
     Indication: CROHN'S DISEASE
     Route: 042
  2. REMICADE [Suspect]
     Indication: RHEUMATOID ARTHRITIS
     Dosage: INITIAL DOSE
     Route: 042
  3. IMODIUM [Concomitant]
     Route: 048
  4. FOLIC ACID [Concomitant]
     Indication: DRUG TOXICITY
     Route: 048
  5. ASPIRIN [Concomitant]
     Route: 048
  6. ACETAMINOPHEN [Concomitant]
     Indication: RHEUMATOID ARTHRITIS
     Route: 048
  7. BRICANYL [Concomitant]
     Route: 055
  8. BRICANYL [Concomitant]
     Indication: HYPERSENSITIVITY
     Route: 055
  9. PULMICORT-100 [Concomitant]
     Route: 055
  10. PULMICORT-100 [Concomitant]
     Indication: HYPERSENSITIVITY
     Route: 055
  11. FLEXERIL [Concomitant]
     Indication: MUSCLE RELAXANT THERAPY
     Route: 048
  12. METHOTREXATE [Concomitant]
     Route: 058
  13. METHOTREXATE [Concomitant]
     Indication: RHEUMATOID ARTHRITIS
     Route: 058

REACTIONS (1)
  - ANAL FISTULA [None]
